FAERS Safety Report 8383450-0 (Version None)
Quarter: 2012Q2

REPORT INFORMATION
  Report Type: 
  Country: None (occurrence: None)
  Receive Date: 20120524
  Receipt Date: 20120521
  Transmission Date: 20120825
  Serious: Yes (Other)
  Sender: FDA-Public Use
  Company Number: PHHY2012MX038512

PATIENT
  Sex: Female

DRUGS (2)
  1. EXFORGE HCT [Suspect]
     Indication: HYPERTENSION
     Dosage: 1.5 DF (320/10/25 MG), DAILY
     Dates: start: 20120323
  2. ASPIRIN [Concomitant]
     Dosage: 1 DF, DAILY
     Dates: start: 20120323

REACTIONS (4)
  - CHOLELITHIASIS [None]
  - OEDEMA PERIPHERAL [None]
  - JOINT SWELLING [None]
  - WRONG TECHNIQUE IN DRUG USAGE PROCESS [None]
